FAERS Safety Report 13942882 (Version 1)
Quarter: 2017Q3

REPORT INFORMATION
  Report Type: Spontaneous
  Country: US (occurrence: US)
  Receive Date: 20170906
  Receipt Date: 20170906
  Transmission Date: 20171127
  Serious: No
  Sender: FDA-Public Use
  Company Number: US-NEPHRON PHARMACEUTICALS CORPORATION-2025569

PATIENT
  Age: 64 Year
  Sex: Female
  Weight: 75 kg

DRUGS (1)
  1. ALBUTEROL SULFATE INHALATION SOLUTION, 0.083% [Suspect]
     Active Substance: ALBUTEROL SULFATE
     Indication: RADIATION PNEUMONITIS
     Route: 055

REACTIONS (3)
  - Cough [Unknown]
  - Respiratory tract congestion [Unknown]
  - Chest discomfort [Unknown]

NARRATIVE: CASE EVENT DATE: 20170811
